FAERS Safety Report 4971627-3 (Version None)
Quarter: 2006Q2

REPORT INFORMATION
  Report Type: 
  Country: None (occurrence: None)
  Receive Date: 20060413
  Receipt Date: 20060404
  Transmission Date: 20061013
  Serious: Yes (Life-Threatening, Other)
  Sender: FDA-Public Use
  Company Number: JP-JNJFOC-20060307647

PATIENT
  Sex: Male

DRUGS (7)
  1. CRAVIT [Suspect]
     Indication: INFECTION PROPHYLAXIS
     Route: 048
     Dates: start: 20050304, end: 20050309
  2. BIOFERMIN R [Concomitant]
     Indication: INFECTION PROPHYLAXIS
     Route: 048
  3. ISODINE GARGLE [Concomitant]
     Route: 048
  4. ISODINE GARGLE [Concomitant]
     Route: 048
  5. ISODINE GARGLE [Concomitant]
     Indication: WOUND INFECTION
     Route: 048
  6. SOLETON [Concomitant]
  7. CEFZON [Concomitant]
     Indication: INFECTION PROPHYLAXIS

REACTIONS (5)
  - CLAVICLE FRACTURE [None]
  - CLOSTRIDIUM COLITIS [None]
  - FALL [None]
  - LOSS OF CONSCIOUSNESS [None]
  - MELAENA [None]
